FAERS Safety Report 8914653 (Version 1)
Quarter: 2012Q4

REPORT INFORMATION
  Report Type: 
  Country: US (occurrence: US)
  Receive Date: 20121116
  Receipt Date: 20121116
  Transmission Date: 20130627
  Serious: Yes (Other)
  Sender: FDA-Public Use
  Company Number: US-B.I. PHARMACEUTICALS,INC./RIDGEFIELD-2012-BI-00332GD

PATIENT
  Age: 14 Year
  Sex: Male

DRUGS (5)
  1. IBUPROFEN [Suspect]
     Dosage: 200 mg
     Route: 048
  2. RANITIDINE [Suspect]
     Indication: ANAPHYLACTIC REACTION
     Dosage: 150 mg
  3. MONTELUKAST [Suspect]
     Indication: ANAPHYLACTIC REACTION
     Dosage: 10 mg
  4. FEXOFENADINE [Suspect]
     Indication: ANAPHYLACTIC REACTION
     Dosage: 180 mg
  5. CROMOLYN [Suspect]
     Indication: ANAPHYLACTIC REACTION
     Dosage: 200 mg

REACTIONS (2)
  - Anaphylactic reaction [Unknown]
  - Drug ineffective [Recovered/Resolved]
